FAERS Safety Report 24007656 (Version 1)
Quarter: 2024Q2

REPORT INFORMATION
  Report Type: Spontaneous
  Country: US (occurrence: US)
  Receive Date: 20240625
  Receipt Date: 20240625
  Transmission Date: 20240716
  Serious: Yes (Other)
  Sender: FDA-Public Use
  Company Number: US-SPECGX-T202401320

PATIENT
  Age: 56 Year
  Sex: Female
  Weight: 66 kg

DRUGS (1)
  1. DEXTROAMPHET SACCHARAT, AMPHET ASPARTATE, DEXTROAMPHET SULFATE AND AMP [Suspect]
     Active Substance: AMPHETAMINE ASPARTATE\AMPHETAMINE ASPARTATE MONOHYDRATE\AMPHETAMINE SULFATE\DEXTROAMPHETAMINE SACCHA
     Indication: Attention deficit hyperactivity disorder
     Dosage: 15 MILLIGRAM, QD
     Route: 065
     Dates: start: 20240416, end: 20240419

REACTIONS (11)
  - Attention deficit hyperactivity disorder [Recovered/Resolved]
  - Condition aggravated [Recovered/Resolved]
  - Night sweats [Recovered/Resolved]
  - Lethargy [Recovered/Resolved]
  - Brain fog [Recovered/Resolved]
  - Nightmare [Recovered/Resolved]
  - Sleep disorder [Recovered/Resolved]
  - Mood altered [Recovered/Resolved]
  - Anxiety [Recovered/Resolved]
  - Loss of personal independence in daily activities [Unknown]
  - Drug ineffective [Unknown]

NARRATIVE: CASE EVENT DATE: 20240416
